FAERS Safety Report 11315146 (Version 21)
Quarter: 2016Q4

REPORT INFORMATION
  Report Type: Report from Study
  Country: CA (occurrence: CA)
  Receive Date: 20150727
  Receipt Date: 20161226
  Transmission Date: 20170206
  Serious: Yes (Hospitalization, Other)
  Sender: FDA-Public Use
  Company Number: PHHY2015CA087117

PATIENT
  Age: 47 Year
  Sex: Female

DRUGS (6)
  1. SANDOSTATIN LAR DEPOT [Suspect]
     Active Substance: OCTREOTIDE ACETATE
     Dosage: 40 MG, EVERY THREE WEEKS
     Route: 030
     Dates: start: 20160401
  2. SANDOSTATIN [Suspect]
     Active Substance: OCTREOTIDE ACETATE
     Indication: NEUROENDOCRINE TUMOUR
     Dosage: 100 UG, TID (UNTIL THE START OF THE FIRST LAR)
     Route: 058
     Dates: start: 20150703, end: 201507
  3. SANDOSTATIN LAR DEPOT [Suspect]
     Active Substance: OCTREOTIDE ACETATE
     Indication: NEUROENDOCRINE TUMOUR
     Dosage: 30 MG, QMO
     Route: 030
     Dates: start: 20150721, end: 20150814
  4. SANDOSTATIN LAR DEPOT [Suspect]
     Active Substance: OCTREOTIDE ACETATE
     Dosage: 30 MG, EVERY 3 WEEKS
     Route: 030
     Dates: start: 20150904, end: 20151016
  5. SANDOSTATIN LAR DEPOT [Suspect]
     Active Substance: OCTREOTIDE ACETATE
     Dosage: 40 MG, EVERY THREE WEEKS
     Route: 030
     Dates: start: 20151106, end: 20160219
  6. SANDOSTATIN LAR DEPOT [Suspect]
     Active Substance: OCTREOTIDE ACETATE
     Dosage: 50 MG, EVERY THREE WEEKS
     Route: 030
     Dates: start: 20160311, end: 20160311

REACTIONS (31)
  - Neoplasm malignant [Unknown]
  - Blood pressure diastolic increased [Unknown]
  - Nausea [Recovering/Resolving]
  - Ovarian cyst [Unknown]
  - Vomiting [Recovering/Resolving]
  - Hiatus hernia [Unknown]
  - Stress [Unknown]
  - Feeling abnormal [Unknown]
  - Body temperature decreased [Unknown]
  - Oral herpes [Unknown]
  - Abdominal pain upper [Unknown]
  - Injection site pain [Unknown]
  - Inappropriate schedule of drug administration [Unknown]
  - Pulmonary mass [Unknown]
  - Nodule [Unknown]
  - Loss of consciousness [Unknown]
  - Arthralgia [Unknown]
  - Chills [Not Recovered/Not Resolved]
  - Blindness transient [Recovered/Resolved]
  - Heart rate decreased [Unknown]
  - Dizziness [Recovered/Resolved]
  - Dehydration [Unknown]
  - Hepatic lesion [Not Recovered/Not Resolved]
  - Emotional disorder [Unknown]
  - Breast mass [Unknown]
  - Fatigue [Unknown]
  - Diarrhoea [Unknown]
  - Blood pressure increased [Unknown]
  - Depressed mood [Unknown]
  - Insomnia [Unknown]
  - Abdominal distension [Unknown]

NARRATIVE: CASE EVENT DATE: 20150721
